FAERS Safety Report 7266928-2 (Version None)
Quarter: 2011Q1

REPORT INFORMATION
  Report Type: 
  Country: None (occurrence: None)
  Receive Date: 20110201
  Receipt Date: 20110124
  Transmission Date: 20110831
  Serious: Yes (Hospitalization, Other)
  Sender: FDA-Public Use
  Company Number: US-JNJFOC-20100302584

PATIENT
  Sex: Male

DRUGS (3)
  1. LEVAQUIN [Suspect]
     Route: 048
  2. STEROIDS NOS [Suspect]
     Indication: INFECTION
     Route: 065
  3. LEVAQUIN [Suspect]
     Indication: KIDNEY INFECTION
     Route: 042

REACTIONS (12)
  - CHONDROMALACIA [None]
  - MUSCULAR WEAKNESS [None]
  - HALLUCINATION [None]
  - EXOSTOSIS [None]
  - LIGAMENT INJURY [None]
  - DELIRIUM [None]
  - CONTRAINDICATION TO MEDICAL TREATMENT [None]
  - TENOSYNOVITIS [None]
  - MENISCUS LESION [None]
  - PAIN IN EXTREMITY [None]
  - JOINT INJURY [None]
  - TENDON RUPTURE [None]
